FAERS Safety Report 5762580-3 (Version None)
Quarter: 2008Q2

REPORT INFORMATION
  Report Type: 
  Country: None (occurrence: None)
  Receive Date: 20080609
  Receipt Date: 20080528
  Transmission Date: 20081010
  Serious: Yes (Hospitalization)
  Sender: FDA-Public Use
  Company Number: CA-JNJFOC-20080204719

PATIENT
  Sex: Female
  Weight: 68.2 kg

DRUGS (1)
  1. REMICADE [Suspect]
     Indication: RHEUMATOID ARTHRITIS
     Dosage: THERAPY DURATION: FROM04-FEB-2008 TO 13-MAY.
     Route: 042

REACTIONS (1)
  - FEELING ABNORMAL [None]
